FAERS Safety Report 6525994-X (Version None)
Quarter: 2010Q1

REPORT INFORMATION
  Report Type: 
  Country: None (occurrence: None)
  Receive Date: 20100104
  Receipt Date: 20091221
  Transmission Date: 20100710
  Serious: Yes (Hospitalization, Other)
  Sender: FDA-Public Use
  Company Number: US-CELGENEUS-163-21880-09100842

PATIENT
  Sex: Female

DRUGS (5)
  1. REVLIMID [Suspect]
     Indication: MULTIPLE MYELOMA
     Route: 048
     Dates: start: 20091124
  2. REVLIMID [Suspect]
     Route: 048
     Dates: start: 20071127, end: 20090921
  3. REVLIMID [Suspect]
     Route: 048
     Dates: start: 20091210
  4. TAMIFLU [Concomitant]
     Indication: DRUG USE FOR UNKNOWN INDICATION
     Route: 065
     Dates: start: 20090921
  5. LEVAQUIN [Concomitant]
     Indication: DRUG USE FOR UNKNOWN INDICATION
     Route: 065
     Dates: start: 20090921

REACTIONS (4)
  - DEHYDRATION [None]
  - NEPHROLITHIASIS [None]
  - SUPRAVENTRICULAR TACHYCARDIA [None]
  - UROSEPSIS [None]
